FAERS Safety Report 23936868 (Version 1)
Quarter: 2024Q2

REPORT INFORMATION
  Report Type: Report from Study
  Country: CN (occurrence: CN)
  Receive Date: 20240604
  Receipt Date: 20240604
  Transmission Date: 20240716
  Serious: Yes (Hospitalization)
  Sender: FDA-Public Use
  Company Number: CN-TEVA-VS-3205152

PATIENT
  Age: 45 Year
  Sex: Female
  Weight: 49 kg

DRUGS (8)
  1. AUSTEDO [Suspect]
     Active Substance: DEUTETRABENAZINE
     Indication: Tardive dyskinesia
     Route: 048
     Dates: start: 20240410, end: 20240417
  2. AUSTEDO [Suspect]
     Active Substance: DEUTETRABENAZINE
     Indication: Tardive dyskinesia
     Dosage: 6 MG IN MORNING, 12 MG IN THE EVENING
     Route: 048
     Dates: start: 20240418, end: 20240424
  3. AUSTEDO [Suspect]
     Active Substance: DEUTETRABENAZINE
     Indication: Tardive dyskinesia
     Route: 048
     Dates: start: 20240425, end: 20240501
  4. AUSTEDO [Suspect]
     Active Substance: DEUTETRABENAZINE
     Indication: Tardive dyskinesia
     Route: 048
     Dates: start: 20240509, end: 20240512
  5. AUSTEDO [Suspect]
     Active Substance: DEUTETRABENAZINE
     Indication: Tardive dyskinesia
     Dosage: 18 MG IN MORNING, 12 MG IN THE EVENING
     Route: 048
     Dates: start: 20240502, end: 20240508
  6. AUSTEDO [Suspect]
     Active Substance: DEUTETRABENAZINE
     Indication: Tardive dyskinesia
     Route: 048
     Dates: start: 20240513, end: 20240518
  7. AUSTEDO [Suspect]
     Active Substance: DEUTETRABENAZINE
     Indication: Tardive dyskinesia
     Dosage: 12 MG IN MORNING, 6 MG IN THE EVENING
     Route: 048
     Dates: start: 20240519, end: 20240521
  8. AUSTEDO [Suspect]
     Active Substance: DEUTETRABENAZINE
     Indication: Tardive dyskinesia
     Route: 048
     Dates: start: 20240522

REACTIONS (1)
  - Excessive eye blinking [Not Recovered/Not Resolved]

NARRATIVE: CASE EVENT DATE: 20240524
